FAERS Safety Report 6968797-4 (Version None)
Quarter: 2010Q3

REPORT INFORMATION
  Report Type: 
  Country: None (occurrence: None)
  Receive Date: 20100907
  Receipt Date: 20100825
  Transmission Date: 20110219
  Serious: Yes (Disabling, Other)
  Sender: FDA-Public Use
  Company Number: GB-JNJFOC-20100705204

PATIENT
  Age: 9 Year
  Sex: Female

DRUGS (3)
  1. NIZORAL [Suspect]
     Route: 061
  2. NIZORAL [Suspect]
     Indication: DRY SKIN
     Route: 061
  3. MEBENDAZOLE [Concomitant]
     Indication: ENTEROBIASIS
     Route: 048

REACTIONS (2)
  - ALOPECIA [None]
  - TRICHORRHEXIS [None]
